FAERS Safety Report 7201489-5 (Version None)
Quarter: 2010Q4

REPORT INFORMATION
  Report Type: 
  Country: None (occurrence: None)
  Receive Date: 20101216
  Receipt Date: 20101201
  Transmission Date: 20110411
  Serious: Yes (Hospitalization, Other)
  Sender: FDA-Public Use
  Company Number: 2010AP002586

PATIENT
  Age: 13 Month

DRUGS (1)
  1. LAMOTRIGINE TABLETS 200 MG [Suspect]
     Dosage: PO
     Route: 048

REACTIONS (14)
  - ACCIDENTAL DRUG INTAKE BY CHILD [None]
  - ACCIDENTAL OVERDOSE [None]
  - ATAXIA [None]
  - BLOOD GLUCOSE INCREASED [None]
  - BLOOD PRESSURE SYSTOLIC DECREASED [None]
  - CARBON DIOXIDE DECREASED [None]
  - CONVULSION [None]
  - DRUG TOXICITY [None]
  - HEART RATE INCREASED [None]
  - LETHARGY [None]
  - MYOCLONIC EPILEPSY [None]
  - NYSTAGMUS [None]
  - RESPIRATORY RATE INCREASED [None]
  - TONIC CLONIC MOVEMENTS [None]
